FAERS Safety Report 6332731-0 (Version None)
Quarter: 2009Q3

REPORT INFORMATION
  Report Type: 
  Country: None (occurrence: None)
  Receive Date: 20090828
  Receipt Date: 20090820
  Transmission Date: 20100115
  Serious: Yes (Hospitalization)
  Sender: FDA-Public Use
  Company Number: SE-ABBOTT-09P-150-0592421-00

PATIENT
  Sex: Female

DRUGS (3)
  1. DEPAKENE [Suspect]
     Indication: EPILEPSY
     Route: 048
  2. LAMICTAL [Suspect]
     Indication: EPILEPSY
     Dates: end: 20090323
  3. LAMICTAL [Suspect]
     Dosage: LOWER DOSE
     Route: 048
     Dates: start: 20090326

REACTIONS (5)
  - DIPLOPIA [None]
  - DIZZINESS [None]
  - DRUG LEVEL ABOVE THERAPEUTIC [None]
  - FATIGUE [None]
  - NAUSEA [None]
